FAERS Safety Report 5230365-2 (Version None)
Quarter: 2007Q1

REPORT INFORMATION
  Report Type: 
  Country: None (occurrence: None)
  Receive Date: 20070206
  Receipt Date: 20070130
  Transmission Date: 20070707
  Serious: Yes (Hospitalization)
  Sender: FDA-Public Use
  Company Number: US-BRACCO-BDI-009092

PATIENT
  Age: 45 Year
  Sex: Male

DRUGS (8)
  1. ISOVUE-300 [Suspect]
     Route: 037
  2. ISOVUE-300 [Suspect]
     Indication: NECK PAIN
     Route: 037
  3. ACYCLOVIR [Concomitant]
     Route: 050
  4. SERTRALINE [Concomitant]
     Route: 050
  5. KALETRA [Concomitant]
     Dosage: LOPINAVIR 133.3/RITONAVIR 33.3
     Route: 050
  6. TRUVADA [Concomitant]
     Dosage: EMTRICITABINE 200 MG/TENOFOVIR 300 MG
     Route: 050
  7. CLOPIDOGREL [Concomitant]
     Route: 050
  8. ATORVASTATIN CALCIUM [Concomitant]
     Route: 050

REACTIONS (6)
  - ACUTE RESPIRATORY FAILURE [None]
  - ANGER [None]
  - CONVULSION [None]
  - DISORIENTATION [None]
  - ENCEPHALITIS [None]
  - HYPERSOMNIA [None]
